FAERS Safety Report 21525978 (Version 1)
Quarter: 2022Q4

REPORT INFORMATION
  Report Type: Spontaneous
  Country: PH (occurrence: None)
  Receive Date: 20221031
  Receipt Date: 20221031
  Transmission Date: 20230113
  Serious: Yes (Other)
  Sender: FDA-Public Use
  Company Number: PH-ROCHE-3207545

PATIENT
  Sex: Female

DRUGS (2)
  1. HERCEPTIN [Suspect]
     Active Substance: TRASTUZUMAB
     Indication: Breast cancer metastatic
     Dosage: HERCEPTIN 150 MG 2 VIALS
     Route: 042
  2. PERJETA [Concomitant]
     Active Substance: PERTUZUMAB
     Indication: HER2 positive breast cancer
     Dosage: PERJETA 420 MG 1 VIAL ;ONGOING: YES

REACTIONS (2)
  - Recurrent cancer [Unknown]
  - Malaise [Unknown]
